FAERS Safety Report 7770965-9 (Version None)
Quarter: 2011Q3

REPORT INFORMATION
  Report Type: 
  Country: None (occurrence: None)
  Receive Date: 20110922
  Receipt Date: 20110314
  Transmission Date: 20111222
  Serious: No
  Sender: FDA-Public Use
  Company Number: US-ASTRAZENECA-2011SE08953

PATIENT
  Age: 43 Year
  Sex: Female
  Weight: 54.9 kg

DRUGS (5)
  1. SEROQUEL [Suspect]
     Indication: ANXIETY
     Route: 048
     Dates: start: 20070101, end: 20110110
  2. TEGRETOL [Concomitant]
     Indication: DEPRESSION
  3. NORTRYPITLINE [Concomitant]
     Indication: DEPRESSION
  4. UNSPECIFIED CONMED [Concomitant]
  5. SEROQUEL [Suspect]
     Indication: DEPRESSION
     Route: 048
     Dates: start: 20070101, end: 20110110

REACTIONS (5)
  - DRUG DOSE OMISSION [None]
  - OBSESSIVE-COMPULSIVE DISORDER [None]
  - DEPRESSION [None]
  - OFF LABEL USE [None]
  - THERAPY REGIMEN CHANGED [None]
